FAERS Safety Report 9997958 (Version 1)
Quarter: 2014Q1

REPORT INFORMATION
  Report Type: Report from Study
  Country: IL (occurrence: IL)
  Receive Date: 20140311
  Receipt Date: 20140311
  Transmission Date: 20141002
  Serious: Yes (Hospitalization, Other)
  Sender: FDA-Public Use
  Company Number: PHHY2014IL029195

PATIENT
  Age: 89 Year
  Sex: Male

DRUGS (2)
  1. SANDOSTATIN LAR [Suspect]
     Indication: CARCINOID TUMOUR
     Dosage: 20 MG, EVERY 2 WEEKS
     Route: 030
     Dates: start: 20071011
  2. SANDOSTATIN LAR [Suspect]
     Dosage: 20 MG, EVERY 2 WEEKS
     Route: 030
     Dates: start: 20140225

REACTIONS (2)
  - Rib fracture [Not Recovered/Not Resolved]
  - Fall [Unknown]
